FAERS Safety Report 10638674 (Version 1)
Quarter: 2014Q4

REPORT INFORMATION
  Report Type: Spontaneous
  Country: GB (occurrence: GB)
  Receive Date: 20141208
  Receipt Date: 20141208
  Transmission Date: 20150529
  Serious: Yes (Hospitalization)
  Sender: FDA-Public Use
  Company Number: PHHY2014GB157956

PATIENT
  Age: 91 Year
  Sex: Female

DRUGS (11)
  1. FLUCLOXACILLIN [Suspect]
     Active Substance: FLUCLOXACILLIN
     Dosage: 1 G, QID
     Route: 048
     Dates: start: 20141010, end: 20141017
  2. WARFARIN [Concomitant]
     Active Substance: WARFARIN
  3. FLUCLOXACILLIN [Suspect]
     Active Substance: FLUCLOXACILLIN
     Indication: INFECTED SKIN ULCER
     Dosage: 500 MG, QID
     Route: 048
     Dates: start: 20140929, end: 20141005
  4. GABAPENTIN. [Suspect]
     Active Substance: GABAPENTIN
     Dosage: 100MG IN THE MORNING, 100MG AT LUNCH AND 300MG AT NIGHT
     Route: 048
     Dates: start: 20141015, end: 20141021
  5. ADCAL-D3 [Concomitant]
     Active Substance: CALCIUM CARBONATE\CHOLECALCIFEROL
  6. FUROSEMIDE. [Concomitant]
     Active Substance: FUROSEMIDE
  7. GABAPENTIN. [Suspect]
     Active Substance: GABAPENTIN
     Dosage: 300MG IN THE MORNING, AT LUNCH AND AT NIGHT
     Route: 048
     Dates: start: 20141105, end: 20141106
  8. CARVEDILOL. [Concomitant]
     Active Substance: CARVEDILOL
  9. PARACETAMOL [Concomitant]
     Active Substance: ACETAMINOPHEN
  10. GABAPENTIN. [Suspect]
     Active Substance: GABAPENTIN
     Indication: PAIN
     Dosage: ON ADMISSION: 300MG AT NIGHT
     Route: 048
     Dates: end: 20141014
  11. GABAPENTIN. [Suspect]
     Active Substance: GABAPENTIN
     Dosage: 200MG IN THE MORNING, 200MG AT LUNCH AND 300MG AT NIGHT
     Route: 048
     Dates: start: 20141022, end: 20141104

REACTIONS (2)
  - Cholecystitis [Unknown]
  - Liver function test abnormal [Not Recovered/Not Resolved]

NARRATIVE: CASE EVENT DATE: 20141105
